FAERS Safety Report 14384479 (Version 2)
Quarter: 2018Q1

REPORT INFORMATION
  Report Type: Report from Study
  Country: None (occurrence: GB)
  Receive Date: 20180115
  Receipt Date: 20180117
  Transmission Date: 20180509
  Serious: Yes (Hospitalization)
  Sender: FDA-Public Use
  Company Number: GB-ABBVIE-18K-167-2221538-00

PATIENT
  Age: 66 Year
  Sex: Male
  Weight: 70.4 kg

DRUGS (8)
  1. ZOPICLONE [Concomitant]
     Active Substance: ZOPICLONE
     Indication: PRODUCT USED FOR UNKNOWN INDICATION
     Dates: start: 20120915
  2. FLUDROCORTISONE [Concomitant]
     Active Substance: FLUDROCORTISONE
     Indication: PRODUCT USED FOR UNKNOWN INDICATION
     Dates: start: 20161125
  3. ENTACAPONE. [Concomitant]
     Active Substance: ENTACAPONE
     Indication: PRODUCT USED FOR UNKNOWN INDICATION
     Dates: start: 20020715
  4. SIMVASTATIN. [Concomitant]
     Active Substance: SIMVASTATIN
     Indication: PRODUCT USED FOR UNKNOWN INDICATION
     Dates: start: 20101015
  5. RASAGILINE. [Concomitant]
     Active Substance: RASAGILINE
     Indication: PRODUCT USED FOR UNKNOWN INDICATION
     Dates: start: 20121018
  6. ESCITALOPRAM [Concomitant]
     Active Substance: ESCITALOPRAM OXALATE
     Indication: PRODUCT USED FOR UNKNOWN INDICATION
     Dates: start: 20120425
  7. HUMIRA [Suspect]
     Active Substance: ADALIMUMAB
     Indication: PSORIASIS
     Route: 058
     Dates: start: 20131015, end: 20170522
  8. MIRTAZAPINE. [Concomitant]
     Active Substance: MIRTAZAPINE
     Indication: PRODUCT USED FOR UNKNOWN INDICATION
     Dates: start: 20120425

REACTIONS (7)
  - Orthostatic hypotension [Recovered/Resolved with Sequelae]
  - Orthostatic hypotension [Recovered/Resolved with Sequelae]
  - Hallucination, visual [Recovered/Resolved with Sequelae]
  - Dementia [Recovered/Resolved with Sequelae]
  - Paranoia [Recovered/Resolved with Sequelae]
  - Aggression [Recovered/Resolved with Sequelae]
  - Agitation [Recovered/Resolved with Sequelae]

NARRATIVE: CASE EVENT DATE: 20170411
